FAERS Safety Report 6248725-X (Version None)
Quarter: 2009Q2

REPORT INFORMATION
  Report Type: 
  Country: None (occurrence: None)
  Receive Date: 20090629
  Receipt Date: 20090615
  Transmission Date: 20091009
  Serious: Yes (Hospitalization)
  Sender: FDA-Public Use
  Company Number: US-ELI_LILLY_AND_COMPANY-US200906001828

PATIENT
  Sex: Male
  Weight: 68.027 kg

DRUGS (13)
  1. SOMATROPIN [Suspect]
     Indication: HYPOPITUITARISM
     Dosage: 0.2 MG, DAILY (1/D)
     Route: 058
     Dates: start: 20060901, end: 20080301
  2. TESTIM [Concomitant]
     Dosage: 5 MG, DAILY (1/D)
     Route: 065
  3. SYNTHROID [Concomitant]
     Dosage: 125 UG, DAILY (1/D)
     Route: 065
  4. KEPPRA [Concomitant]
     Dosage: 500 MG, 2/D
     Route: 065
  5. LAMICTAL [Concomitant]
     Dosage: 125 MG, 2/D
     Route: 065
  6. MULTI-VITAMIN [Concomitant]
     Dosage: UNK, DAILY (1/D)
     Route: 065
  7. CORTEF [Concomitant]
     Dosage: 40 MG, EACH MORNING
     Route: 065
  8. CORTEF [Concomitant]
     Dosage: 20 MG, EACH EVENING
     Route: 065
  9. VITAMIN B COMPLEX CAP [Concomitant]
     Dosage: UNK, UNKNOWN
     Route: 065
  10. ASCORBIC ACID [Concomitant]
     Dosage: UNK, UNKNOWN
     Route: 065
  11. PROTONIX [Concomitant]
     Dosage: 40 MG, DAILY (1/D)
     Route: 065
  12. FISH OIL [Concomitant]
     Dosage: 1 G, DAILY (1/D)
     Route: 065
  13. FOLIC ACID [Concomitant]
     Dosage: UNK, UNKNOWN
     Route: 065

REACTIONS (3)
  - CONVULSION [None]
  - INFECTION [None]
  - SURGICAL VASCULAR SHUNT [None]
